FAERS Safety Report 5180905-7 (Version None)
Quarter: 2006Q4

REPORT INFORMATION
  Report Type: 
  Country: None (occurrence: None)
  Receive Date: 20061219
  Receipt Date: 20060828
  Transmission Date: 20070319
  Serious: No
  Sender: FDA-Public Use
  Company Number: US-AMGEN-KDL191666

PATIENT
  Sex: Male

DRUGS (1)
  1. ENBREL [Suspect]
     Indication: ANKYLOSING SPONDYLITIS
     Route: 058
     Dates: start: 20060824

REACTIONS (6)
  - ERYTHEMA [None]
  - LIP SWELLING [None]
  - LOCAL SWELLING [None]
  - OEDEMA MOUTH [None]
  - PRURITUS [None]
  - URTICARIA [None]
